FAERS Safety Report 12707470 (Version 1)
Quarter: 2016Q3

REPORT INFORMATION
  Report Type: Report from Study
  Country: IL (occurrence: IL)
  Receive Date: 20160901
  Receipt Date: 20160901
  Transmission Date: 20161109
  Serious: Yes (Other)
  Sender: FDA-Public Use
  Company Number: PHHY2016IL088398

PATIENT
  Age: 46 Year
  Sex: Female

DRUGS (2)
  1. AFINITOR [Suspect]
     Active Substance: EVEROLIMUS
     Indication: BREAST CANCER
     Dosage: 10 MG, QD
     Route: 048
     Dates: start: 20160620, end: 20160816
  2. AFINITOR [Suspect]
     Active Substance: EVEROLIMUS
     Dosage: 10 MG, QD
     Route: 048
     Dates: start: 20160823

REACTIONS (7)
  - Hepatic lesion [Not Recovered/Not Resolved]
  - Rash [Recovering/Resolving]
  - Oral pain [Not Recovered/Not Resolved]
  - Cheilitis [Not Recovered/Not Resolved]
  - Erythema [Not Recovered/Not Resolved]
  - Rash generalised [Not Recovered/Not Resolved]
  - Headache [Not Recovered/Not Resolved]

NARRATIVE: CASE EVENT DATE: 20160623
